FAERS Safety Report 7964398-X (Version None)
Quarter: 2011Q4

REPORT INFORMATION
  Report Type: 
  Country: None (occurrence: None)
  Receive Date: 20111208
  Receipt Date: 20111130
  Transmission Date: 20120403
  Serious: Yes (Other)
  Sender: FDA-Public Use
  Company Number: US-JNJFOC-20111201745

PATIENT
  Sex: Male

DRUGS (2)
  1. CHILDREN'S BENADRYL ALLERGY [Suspect]
     Route: 048
  2. CHILDREN'S BENADRYL ALLERGY [Suspect]
     Indication: DRUG HYPERSENSITIVITY
     Dosage: 4 TSP EVERY 4-6 HRS OR 6-8 HRS, THEN EVERY 10-12 HRS FOR THE LAST WEEK, FOR A TOTAL OF 4 WEEKS
     Route: 048
     Dates: start: 20110101

REACTIONS (5)
  - WITHDRAWAL SYNDROME [None]
  - FEELING JITTERY [None]
  - COLD SWEAT [None]
  - PRODUCT QUALITY ISSUE [None]
  - NAUSEA [None]
